FAERS Safety Report 25652735 (Version 2)
Quarter: 2025Q3

REPORT INFORMATION
  Report Type: Spontaneous
  Country: US (occurrence: US)
  Receive Date: 20250807
  Receipt Date: 20250818
  Transmission Date: 20251020
  Serious: No
  Sender: SANOFI AVENTIS
  Company Number: US-SA-2025SA229563

PATIENT
  Age: 58 Year
  Sex: Female

DRUGS (2)
  1. DUPIXENT [Suspect]
     Active Substance: DUPILUMAB
     Indication: Dermatitis atopic
     Route: 058
     Dates: start: 202504, end: 202504
  2. DUPIXENT [Suspect]
     Active Substance: DUPILUMAB
     Indication: Eczema
     Dosage: 300 MG, QOW
     Route: 058
     Dates: start: 2025

REACTIONS (13)
  - Influenza like illness [Recovered/Resolved]
  - Malaise [Recovered/Resolved]
  - Transient acantholytic dermatosis [Unknown]
  - Psoriasis [Unknown]
  - Skin swelling [Recovered/Resolved]
  - Dry skin [Recovered/Resolved]
  - Skin plaque [Recovered/Resolved]
  - Erythema [Recovered/Resolved]
  - Pruritus [Recovered/Resolved]
  - Skin exfoliation [Recovered/Resolved]
  - Rash [Recovered/Resolved]
  - Dermatitis atopic [Unknown]
  - Intentional product misuse [Unknown]

NARRATIVE: CASE EVENT DATE: 20250101
